FAERS Safety Report 8250893-5 (Version None)
Quarter: 2012Q2

REPORT INFORMATION
  Report Type: 
  Country: None (occurrence: None)
  Receive Date: 20120402
  Receipt Date: 20120319
  Transmission Date: 20120825
  Serious: Yes (Death, Other)
  Sender: FDA-Public Use
  Company Number: US-UCBSA-054345

PATIENT
  Sex: Male
  Weight: 54.55 kg

DRUGS (2)
  1. VIMPAT [Suspect]
     Indication: EPILEPSY
     Route: 048
     Dates: start: 20100212, end: 20100405
  2. DILANTIN [Suspect]

REACTIONS (10)
  - MENINGITIS NONINFECTIVE [None]
  - ENCEPHALOPATHY [None]
  - DELIRIUM [None]
  - ELECTROCARDIOGRAM QT PROLONGED [None]
  - CARDIOMYOPATHY [None]
  - ARRHYTHMIA [None]
  - CONVULSION [None]
  - TORSADE DE POINTES [None]
  - ENCEPHALITIS [None]
  - SUDDEN DEATH [None]
